FAERS Safety Report 5581983-3 (Version None)
Quarter: 2008Q1

REPORT INFORMATION
  Report Type: 
  Country: None (occurrence: None)
  Receive Date: 20080104
  Receipt Date: 20071112
  Transmission Date: 20080703
  Serious: Yes (Death, Other)
  Sender: FDA-Public Use
  Company Number: US-PURDUE-USA_2007_0030580

PATIENT
  Age: 48 Year
  Sex: Male

DRUGS (2)
  1. OXYCONTIN [Suspect]
     Indication: RADICULAR PAIN
     Dosage: UNK, SEE TEXT
     Dates: start: 19980916
  2. OXYIR [Concomitant]
     Indication: DRUG USE FOR UNKNOWN INDICATION
     Dosage: 5 MG, SEE TEXT
     Dates: start: 19981016

REACTIONS (2)
  - DEATH [None]
  - DRUG DEPENDENCE [None]
